FAERS Safety Report 9493363 (Version 1)
Quarter: 2013Q3

REPORT INFORMATION
  Report Type: Spontaneous
  Country: US (occurrence: US)
  Receive Date: 20130902
  Receipt Date: 20130902
  Transmission Date: 20140515
  Serious: No
  Sender: FDA-Public Use
  Company Number: US-009507513-1308USA011538

PATIENT
  Age: 42 Year
  Sex: Male

DRUGS (7)
  1. ISENTRESS [Suspect]
     Indication: HIV INFECTION
     Dosage: 400 MG, BID
     Route: 048
  2. VIREAD [Concomitant]
  3. NORVIR [Concomitant]
  4. RITONAVIR [Concomitant]
  5. REYATAZ [Concomitant]
  6. PRAVASTATIN SODIUM [Concomitant]
  7. ALBUTEROL SULFATE [Concomitant]

REACTIONS (1)
  - Weight increased [Unknown]
